FAERS Safety Report 4608869-2 (Version None)
Quarter: 2005Q1

REPORT INFORMATION
  Report Type: 
  Country: None (occurrence: None)
  Receive Date: 20050311
  Receipt Date: 20050228
  Transmission Date: 20050727
  Serious: Yes (Hospitalization, Disabling)
  Sender: FDA-Public Use
  Company Number: 2005033550

PATIENT
  Age: 49 Year
  Sex: Male
  Weight: 85 kg

DRUGS (4)
  1. CARDURA XL [Suspect]
     Indication: HYPERTENSION
     Dosage: 4 MG (4 MG, EVERY NIGHT), ORAL
     Route: 048
     Dates: start: 20021001, end: 20050101
  2. PRAMIPEXOLE (PRAMIPEXOLE) [Concomitant]
  3. INDAPAMIDE [Concomitant]
  4. PERINDOPRIL (PERINDOPRIL) [Concomitant]

REACTIONS (1)
  - VIRAL LABYRINTHITIS [None]
